FAERS Safety Report 5898748-5 (Version None)
Quarter: 2008Q3

REPORT INFORMATION
  Report Type: 
  Country: None (occurrence: None)
  Receive Date: 20080925
  Receipt Date: 20080522
  Transmission Date: 20090109
  Serious: No
  Sender: FDA-Public Use
  Company Number: A0729240A

PATIENT
  Age: 54 Year
  Sex: Female

DRUGS (7)
  1. BUPROPION HYDROCHLORIDE [Suspect]
     Indication: DEPRESSION
     Dosage: 300MG PER DAY
     Route: 048
     Dates: start: 20080401
  2. PROPRANOLOL [Concomitant]
  3. SERTRALINE [Concomitant]
  4. TOPAMAX [Concomitant]
  5. LEVOTHYROXINE SODIUM [Concomitant]
  6. ASPIRIN [Concomitant]
  7. CENTRUM SILVER [Concomitant]

REACTIONS (5)
  - ANOREXIA [None]
  - APATHY [None]
  - DRUG INEFFECTIVE [None]
  - EMOTIONAL DISORDER [None]
  - SOCIAL AVOIDANT BEHAVIOUR [None]
